FAERS Safety Report 14932914 (Version 1)
Quarter: 2018Q2

REPORT INFORMATION
  Report Type: Spontaneous
  Country: IT (occurrence: IT)
  Receive Date: 20180524
  Receipt Date: 20180524
  Transmission Date: 20180711
  Serious: Yes (Hospitalization, Other)
  Sender: FDA-Public Use
  Company Number: IT-AMGEN-ITASP2018069579

PATIENT
  Age: 79 Year
  Sex: Male

DRUGS (7)
  1. LIXIANA [Concomitant]
     Active Substance: EDOXABAN TOSYLATE
     Dosage: UNK
  2. ENBREL [Suspect]
     Active Substance: ETANERCEPT
     Indication: ANKYLOSING SPONDYLITIS
     Dosage: 1 DF, QWK
     Route: 058
     Dates: start: 20170101, end: 20170930
  3. BISOPROLOL HEMIFUMARATE [Concomitant]
     Active Substance: BISOPROLOL FUMARATE
     Dosage: UNK
  4. KARVEZIDE [Concomitant]
     Active Substance: HYDROCHLOROTHIAZIDE\IRBESARTAN
     Dosage: UNK
  5. LANSOX [Concomitant]
     Active Substance: LANSOPRAZOLE
     Dosage: UNK
  6. ZANEDIP [Concomitant]
     Active Substance: LERCANIDIPINE HYDROCHLORIDE
     Dosage: UNK
  7. SUMMA [Concomitant]
     Dosage: UNK

REACTIONS (4)
  - Dyspnoea [Unknown]
  - Tachycardia [Unknown]
  - Angina pectoris [Unknown]
  - Chest pain [Unknown]

NARRATIVE: CASE EVENT DATE: 20170930
